FAERS Safety Report 6930971-0 (Version None)
Quarter: 2010Q3

REPORT INFORMATION
  Report Type: 
  Country: None (occurrence: None)
  Receive Date: 20100818
  Receipt Date: 20100810
  Transmission Date: 20110219
  Serious: Yes (Hospitalization)
  Sender: FDA-Public Use
  Company Number: DE-BAYER-201026580GPV

PATIENT
  Age: 2 Year
  Sex: Male
  Weight: 9 kg

DRUGS (71)
  1. FACTOR VIII, RECOMBINANT FS [Suspect]
     Indication: FACTOR VIII DEFICIENCY
     Route: 042
     Dates: start: 20090525, end: 20090525
  2. FACTOR VIII, RECOMBINANT FS [Suspect]
     Route: 042
     Dates: start: 20090527, end: 20090527
  3. FACTOR VIII, RECOMBINANT FS [Suspect]
     Route: 042
     Dates: start: 20090626, end: 20090626
  4. FACTOR VIII, RECOMBINANT FS [Suspect]
     Route: 042
     Dates: start: 20091027, end: 20091027
  5. FACTOR VIII, RECOMBINANT FS [Suspect]
     Dosage: TOTAL DAILY DOSE: 1000 IU
     Route: 042
     Dates: start: 20091222, end: 20091224
  6. FACTOR VIII, RECOMBINANT FS [Suspect]
     Route: 042
     Dates: start: 20091225, end: 20091228
  7. FACTOR VIII, RECOMBINANT FS [Suspect]
     Dosage: 1000IU / 500IU
     Route: 042
     Dates: start: 20091229, end: 20091229
  8. FACTOR VIII, RECOMBINANT FS [Suspect]
     Route: 042
     Dates: start: 20091230, end: 20091231
  9. FACTOR VIII, RECOMBINANT FS [Suspect]
     Route: 042
     Dates: start: 20100101, end: 20100104
  10. FACTOR VIII, RECOMBINANT FS [Suspect]
     Route: 042
     Dates: start: 20100106, end: 20100106
  11. FACTOR VIII, RECOMBINANT FS [Suspect]
     Route: 042
     Dates: start: 20100108, end: 20100108
  12. FACTOR VIII, RECOMBINANT FS [Suspect]
     Route: 042
     Dates: start: 20100111, end: 20100111
  13. FACTOR VIII, RECOMBINANT FS [Suspect]
     Route: 042
     Dates: start: 20100113, end: 20100113
  14. FACTOR VIII, RECOMBINANT FS [Suspect]
     Route: 042
     Dates: start: 20100115, end: 20100115
  15. FACTOR VIII, RECOMBINANT FS [Suspect]
     Route: 042
     Dates: start: 20100118, end: 20100118
  16. FACTOR VIII, RECOMBINANT FS [Suspect]
     Route: 042
     Dates: start: 20100120, end: 20100120
  17. FACTOR VIII, RECOMBINANT FS [Suspect]
     Route: 042
     Dates: start: 20100122, end: 20100122
  18. FACTOR VIII, RECOMBINANT FS [Suspect]
     Route: 042
     Dates: start: 20100125, end: 20100125
  19. FACTOR VIII, RECOMBINANT FS [Suspect]
     Route: 042
     Dates: start: 20100127, end: 20100127
  20. FACTOR VIII, RECOMBINANT FS [Suspect]
     Route: 042
     Dates: start: 20100129, end: 20100129
  21. FACTOR VIII, RECOMBINANT FS [Suspect]
     Route: 042
     Dates: start: 20100201, end: 20100201
  22. FACTOR VIII, RECOMBINANT FS [Suspect]
     Route: 042
     Dates: start: 20100203, end: 20100203
  23. FACTOR VIII, RECOMBINANT FS [Suspect]
     Route: 042
     Dates: start: 20100205, end: 20100205
  24. FACTOR VIII, RECOMBINANT FS [Suspect]
     Route: 042
     Dates: start: 20100208, end: 20100208
  25. FACTOR VIII, RECOMBINANT FS [Suspect]
     Route: 042
     Dates: start: 20100210, end: 20100210
  26. FACTOR VIII, RECOMBINANT FS [Suspect]
     Route: 042
     Dates: start: 20100212, end: 20100212
  27. FACTOR VIII, RECOMBINANT FS [Suspect]
     Route: 042
     Dates: start: 20100215, end: 20100215
  28. FACTOR VIII, RECOMBINANT FS [Suspect]
     Route: 042
     Dates: start: 20100217, end: 20100217
  29. FACTOR VIII, RECOMBINANT FS [Suspect]
     Route: 042
     Dates: start: 20100219, end: 20100219
  30. FACTOR VIII, RECOMBINANT FS [Suspect]
     Route: 042
     Dates: start: 20100222, end: 20100222
  31. FACTOR VIII, RECOMBINANT FS [Suspect]
     Route: 042
     Dates: start: 20100224, end: 20100224
  32. FACTOR VIII, RECOMBINANT FS [Suspect]
     Route: 042
     Dates: start: 20100226, end: 20100226
  33. FACTOR VIII, RECOMBINANT FS [Suspect]
     Route: 042
     Dates: start: 20100301, end: 20100301
  34. FACTOR VIII, RECOMBINANT FS [Suspect]
     Route: 042
     Dates: start: 20100303, end: 20100303
  35. FACTOR VIII, RECOMBINANT FS [Suspect]
     Route: 042
     Dates: start: 20100305, end: 20100305
  36. FACTOR VIII, RECOMBINANT FS [Suspect]
     Route: 042
     Dates: start: 20100308, end: 20100308
  37. FACTOR VIII, RECOMBINANT FS [Suspect]
     Dosage: 250IU 9:10,  500IU 19:00
     Route: 042
     Dates: start: 20100310, end: 20100310
  38. FACTOR VIII, RECOMBINANT FS [Suspect]
     Route: 042
     Dates: start: 20100312, end: 20100312
  39. FACTOR VIII, RECOMBINANT FS [Suspect]
     Route: 042
     Dates: start: 20100315, end: 20100315
  40. FACTOR VIII, RECOMBINANT FS [Suspect]
     Route: 042
     Dates: start: 20100317, end: 20100317
  41. FACTOR VIII, RECOMBINANT FS [Suspect]
     Route: 042
     Dates: start: 20100319, end: 20100319
  42. FACTOR VIII, RECOMBINANT FS [Suspect]
     Route: 042
     Dates: start: 20100322, end: 20100322
  43. FACTOR VIII, RECOMBINANT FS [Suspect]
     Route: 042
     Dates: start: 20100324, end: 20100324
  44. FACTOR VIII, RECOMBINANT FS [Suspect]
     Route: 042
     Dates: start: 20100326, end: 20100326
  45. FACTOR VIII, RECOMBINANT FS [Suspect]
     Route: 042
     Dates: start: 20100329, end: 20100329
  46. FACTOR VIII, RECOMBINANT FS [Suspect]
     Route: 042
     Dates: start: 20100331, end: 20100331
  47. FACTOR VIII, RECOMBINANT FS [Suspect]
     Route: 042
     Dates: start: 20100402, end: 20100402
  48. FACTOR VIII, RECOMBINANT FS [Suspect]
     Route: 042
     Dates: start: 20100405, end: 20100405
  49. FACTOR VIII, RECOMBINANT FS [Suspect]
     Route: 042
     Dates: start: 20100407, end: 20100407
  50. FACTOR VIII, RECOMBINANT FS [Suspect]
     Route: 042
     Dates: start: 20100409, end: 20100409
  51. FACTOR VIII, RECOMBINANT FS [Suspect]
     Route: 042
     Dates: start: 20100412, end: 20100412
  52. FACTOR VIII, RECOMBINANT FS [Suspect]
     Route: 042
     Dates: start: 20100414, end: 20100414
  53. FACTOR VIII, RECOMBINANT FS [Suspect]
     Route: 042
     Dates: start: 20100416, end: 20100416
  54. FACTOR VIII, RECOMBINANT FS [Suspect]
     Route: 042
     Dates: start: 20100419, end: 20100419
  55. FACTOR VIII, RECOMBINANT FS [Suspect]
     Route: 042
     Dates: start: 20100421, end: 20100421
  56. FACTOR VIII, RECOMBINANT FS [Suspect]
     Route: 042
     Dates: start: 20100423, end: 20100423
  57. FACTOR VIII, RECOMBINANT FS [Suspect]
     Route: 042
     Dates: start: 20100426, end: 20100426
  58. FACTOR VIII, RECOMBINANT FS [Suspect]
     Route: 042
     Dates: start: 20100428, end: 20100428
  59. FACTOR VIII, RECOMBINANT FS [Suspect]
     Route: 042
     Dates: start: 20100430, end: 20100430
  60. FACTOR VIII, RECOMBINANT FS [Suspect]
     Route: 042
     Dates: start: 20100503, end: 20100503
  61. FACTOR VIII, RECOMBINANT FS [Suspect]
     Route: 042
     Dates: start: 20100505, end: 20100505
  62. FACTOR VIII, RECOMBINANT FS [Suspect]
     Route: 042
     Dates: start: 20100507, end: 20100507
  63. FACTOR VIII, RECOMBINANT FS [Suspect]
     Route: 042
     Dates: start: 20100510, end: 20100510
  64. FACTOR VIII, RECOMBINANT FS [Suspect]
     Dosage: UNIT DOSE: 250 IU
     Route: 042
     Dates: start: 20100517, end: 20100517
  65. FACTOR VIII, RECOMBINANT FS [Suspect]
     Dosage: 19-MAY-2010 12:00, 20-MAY-2010 10:00
     Route: 042
     Dates: start: 20100519, end: 20100520
  66. FACTOR VIII, RECOMBINANT FS [Suspect]
     Route: 042
     Dates: start: 20100510, end: 20100510
  67. FACTOR VIII, RECOMBINANT FS [Suspect]
     Dosage: UNIT DOSE: 500 IU
     Route: 042
     Dates: start: 20100511, end: 20100511
  68. FACTOR VIII, RECOMBINANT FS [Suspect]
     Route: 042
     Dates: start: 20100512, end: 20100513
  69. FACTOR VIII, RECOMBINANT FS [Suspect]
     Route: 042
     Dates: start: 20100514, end: 20100514
  70. FACTOR VIII, RECOMBINANT FS [Suspect]
     Dosage: UNIT DOSE: 250 IU
     Route: 042
     Dates: start: 20100517, end: 20100517
  71. FACTOR VIII, RECOMBINANT FS [Suspect]
     Route: 042
     Dates: start: 20100519, end: 20100520

REACTIONS (4)
  - DEVICE OCCLUSION [None]
  - FACTOR VIII INHIBITION [None]
  - HAEMATOMA [None]
  - MUSCLE HAEMORRHAGE [None]
